FAERS Safety Report 6582549-9 (Version None)
Quarter: 2010Q1

REPORT INFORMATION
  Report Type: 
  Country: None (occurrence: None)
  Receive Date: 20100216
  Receipt Date: 20100210
  Transmission Date: 20100710
  Serious: Yes (Other)
  Sender: FDA-Public Use
  Company Number: NL-BAYER-200821771GPV

PATIENT
  Age: 58 Year
  Sex: Male

DRUGS (19)
  1. NEXAVAR [Suspect]
     Indication: HEPATIC NEOPLASM MALIGNANT
     Route: 048
     Dates: start: 20080625, end: 20080701
  2. NEXAVAR [Suspect]
     Dosage: TOTAL DAILY DOSE: 400 MG
     Route: 048
     Dates: start: 20080701
  3. NEXAVAR [Suspect]
     Dosage: TOTAL DAILY DOSE: 800 MG
     Route: 048
     Dates: start: 20080701
  4. NEXAVAR [Suspect]
     Dosage: TOTAL DAILY DOSE: 800 MG
     Route: 048
     Dates: start: 20081010, end: 20100101
  5. NEXAVAR [Suspect]
     Dosage: TOTAL DAILY DOSE: 200 MG
     Route: 048
     Dates: start: 20080909, end: 20080923
  6. NEXAVAR [Suspect]
     Dosage: TOTAL DAILY DOSE: 200 MG
     Route: 048
     Dates: start: 20080704, end: 20080101
  7. NEXAVAR [Suspect]
     Dosage: TOTAL DAILY DOSE: 600 MG
     Route: 048
     Dates: start: 20080701
  8. NEXAVAR [Suspect]
     Dosage: 1DD 1 TABLET AND 1DD 2 TABLETS
     Route: 048
     Dates: start: 20080923, end: 20081010
  9. NEXAVAR [Suspect]
     Dosage: ONE DAY 2 TAB. BID AND THE OTHER DAY 2  TAB. IN THE MORNING AND 3 TAB. IN THE EVENING
     Route: 048
     Dates: start: 20100101
  10. MORPHINE PLASTER (NOS) [Concomitant]
     Indication: DRUG USE FOR UNKNOWN INDICATION
     Route: 003
  11. OMEPRAZOL [Concomitant]
     Indication: PROPHYLAXIS
     Dosage: TOTAL DAILY DOSE: 40 MG
     Route: 048
  12. AMLODIPINE [Concomitant]
     Indication: HYPERTENSION
     Dosage: TOTAL DAILY DOSE: 10 MG
     Route: 048
  13. PRIMPERAN TAB [Concomitant]
     Indication: NAUSEA
     Dosage: TOTAL DAILY DOSE: 30 MG
     Route: 054
     Dates: end: 20090108
  14. TEMAZEPAM [Concomitant]
     Indication: INSOMNIA
     Dosage: TOTAL DAILY DOSE: 10 MG
     Route: 048
  15. ENALAPRIL MALEATE [Concomitant]
     Indication: HYPERTENSION
     Dosage: TOTAL DAILY DOSE: 20 MG
     Route: 065
  16. ASPIRIN AND DIPYRIDAMOLE [Concomitant]
     Indication: CEREBROVASCULAR ACCIDENT PROPHYLAXIS
     Route: 048
  17. FENTANYL [Concomitant]
     Indication: PAIN
     Route: 062
     Dates: end: 20090108
  18. PARACETAMOL [Concomitant]
     Indication: PAIN
     Dosage: TOTAL DAILY DOSE: 1500 MG
     Route: 048
     Dates: end: 20090108
  19. METHYLFENIDAAT [Concomitant]
     Indication: DISTURBANCE IN ATTENTION
     Route: 048

REACTIONS (13)
  - APHASIA [None]
  - CEREBROVASCULAR ACCIDENT [None]
  - DIARRHOEA [None]
  - GINGIVAL BLEEDING [None]
  - GLOSSODYNIA [None]
  - HICCUPS [None]
  - LIP PAIN [None]
  - OROPHARYNGEAL DISCOMFORT [None]
  - PANOPHTHALMITIS [None]
  - PRURITUS [None]
  - RASH [None]
  - RASH MACULAR [None]
  - VOMITING [None]
